FAERS Safety Report 4515707-5 (Version None)
Quarter: 2004Q4

REPORT INFORMATION
  Report Type: 
  Country: None (occurrence: None)
  Receive Date: 20041201
  Receipt Date: 20041028
  Transmission Date: 20050328
  Serious: Yes (Disabling)
  Sender: FDA-Public Use
  Company Number: DE-MERCK-0411DEU00275

PATIENT
  Age: 46 Year
  Sex: Male
  Weight: 87 kg

DRUGS (1)
  1. VIOXX [Suspect]
     Indication: PAIN
     Route: 048
     Dates: start: 20000201, end: 20040101

REACTIONS (5)
  - AGITATION [None]
  - ARRHYTHMIA [None]
  - COLD SWEAT [None]
  - HYPERTHYROIDISM [None]
  - PALPITATIONS [None]
